FAERS Safety Report 19785372 (Version 2)
Quarter: 2021Q3

REPORT INFORMATION
  Report Type: Spontaneous
  Country: CA (occurrence: CA)
  Receive Date: 20210903
  Receipt Date: 20210907
  Transmission Date: 20211014
  Serious: Yes (Hospitalization, Other)
  Sender: FDA-Public Use
  Company Number: CA-PFIZER INC-202101110674

PATIENT
  Age: 50 Year
  Sex: Female

DRUGS (31)
  1. MEMANTINE. [Interacting]
     Active Substance: MEMANTINE
     Indication: COMPLEX REGIONAL PAIN SYNDROME
     Route: 065
  2. RIBOFLAVIN [Interacting]
     Active Substance: RIBOFLAVIN
     Indication: MIGRAINE PROPHYLAXIS
     Dosage: UNK
     Route: 065
  3. LITHIUM CARBONATE. [Interacting]
     Active Substance: LITHIUM CARBONATE
     Indication: COMPLEX REGIONAL PAIN SYNDROME
     Route: 065
  4. MAGNESIUM [Interacting]
     Active Substance: MAGNESIUM
     Indication: MIGRAINE PROPHYLAXIS
     Route: 065
  5. METOPROLOL TARTRATE. [Interacting]
     Active Substance: METOPROLOL TARTRATE
     Indication: COMPLEX REGIONAL PAIN SYNDROME
     Route: 065
  6. APREMILAST [Interacting]
     Active Substance: APREMILAST
     Indication: COMPLEX REGIONAL PAIN SYNDROME
     Route: 065
  7. IBUDILAST [Interacting]
     Active Substance: IBUDILAST
     Indication: COMPLEX REGIONAL PAIN SYNDROME
     Route: 065
  8. MONTELUKAST [Interacting]
     Active Substance: MONTELUKAST SODIUM
     Indication: COMPLEX REGIONAL PAIN SYNDROME
     Route: 065
  9. PALMIDROL [Interacting]
     Active Substance: PALMIDROL
     Indication: COMPLEX REGIONAL PAIN SYNDROME
     Route: 065
  10. CIMETIDINE [Interacting]
     Active Substance: CIMETIDINE
     Indication: COMPLEX REGIONAL PAIN SYNDROME
     Route: 065
  11. RIBOFLAVIN [Interacting]
     Active Substance: RIBOFLAVIN
     Indication: COMPLEX REGIONAL PAIN SYNDROME
     Dosage: UNK
     Route: 065
  12. VITAMIN C [Interacting]
     Active Substance: ASCORBIC ACID
     Indication: COMPLEX REGIONAL PAIN SYNDROME
     Dosage: 1000 MG
     Route: 065
  13. LIDOCAINE HCL [Interacting]
     Active Substance: LIDOCAINE HYDROCHLORIDE
     Indication: COMPLEX REGIONAL PAIN SYNDROME
     Route: 061
  14. ANAKINRA [Interacting]
     Active Substance: ANAKINRA
     Indication: COMPLEX REGIONAL PAIN SYNDROME
     Route: 065
  15. CAPSAICIN. [Interacting]
     Active Substance: CAPSAICIN
     Indication: COMPLEX REGIONAL PAIN SYNDROME
     Route: 065
  16. CLONIDINE. [Interacting]
     Active Substance: CLONIDINE
     Indication: COMPLEX REGIONAL PAIN SYNDROME
     Route: 065
  17. MEXILETINE [Interacting]
     Active Substance: MEXILETINE
     Indication: COMPLEX REGIONAL PAIN SYNDROME
     Route: 065
  18. AMLODIPINE BESILATE [Suspect]
     Active Substance: AMLODIPINE BESYLATE
     Indication: COMPLEX REGIONAL PAIN SYNDROME
     Route: 065
  19. SPIRONOLACTONE. [Interacting]
     Active Substance: SPIRONOLACTONE
     Indication: COMPLEX REGIONAL PAIN SYNDROME
     Route: 065
  20. BUMETANIDE. [Interacting]
     Active Substance: BUMETANIDE
     Indication: COMPLEX REGIONAL PAIN SYNDROME
     Route: 065
  21. ERELZI [Interacting]
     Active Substance: ETANERCEPT-SZZS
     Indication: COMPLEX REGIONAL PAIN SYNDROME
     Route: 065
  22. PREDNISONE. [Interacting]
     Active Substance: PREDNISONE
     Indication: COMPLEX REGIONAL PAIN SYNDROME
     Dosage: UNK, 1 EVERY 1 DAYS
     Route: 065
  23. PREGABALIN. [Interacting]
     Active Substance: PREGABALIN
     Indication: COMPLEX REGIONAL PAIN SYNDROME
     Route: 065
  24. ACETYLCYSTEINE. [Interacting]
     Active Substance: ACETYLCYSTEINE
     Indication: COMPLEX REGIONAL PAIN SYNDROME
     Route: 065
  25. AMITRIPTYLINE HYDROCHLORIDE. [Interacting]
     Active Substance: AMITRIPTYLINE HYDROCHLORIDE
     Indication: COMPLEX REGIONAL PAIN SYNDROME
     Route: 065
  26. DILTIAZEM [DILTIAZEM HYDROCHLORIDE] [Interacting]
     Active Substance: DILTIAZEM HYDROCHLORIDE
     Indication: COMPLEX REGIONAL PAIN SYNDROME
     Route: 065
  27. HYDROXYCHLOROQUINE SULFATE. [Interacting]
     Active Substance: HYDROXYCHLOROQUINE SULFATE
     Indication: COMPLEX REGIONAL PAIN SYNDROME
     Route: 065
  28. KETAMINE [Interacting]
     Active Substance: KETAMINE
     Indication: COMPLEX REGIONAL PAIN SYNDROME
     Route: 048
  29. MYCOPHENOLATE MOFETIL. [Interacting]
     Active Substance: MYCOPHENOLATE MOFETIL
     Indication: COMPLEX REGIONAL PAIN SYNDROME
     Route: 065
  30. NALTREXONE HYDROCHLORIDE. [Interacting]
     Active Substance: NALTREXONE HYDROCHLORIDE
     Indication: COMPLEX REGIONAL PAIN SYNDROME
     Dosage: 4.5 MG, 1 EVERY 1 DAYS
     Route: 065
  31. PENTOXIFYLLINE. [Interacting]
     Active Substance: PENTOXIFYLLINE
     Indication: COMPLEX REGIONAL PAIN SYNDROME
     Route: 065

REACTIONS (21)
  - Fatigue [Recovered/Resolved]
  - Herpes zoster [Recovered/Resolved]
  - Impaired quality of life [Recovered/Resolved]
  - Infection susceptibility increased [Recovered/Resolved]
  - Drug ineffective [Recovered/Resolved]
  - Glucose tolerance impaired [Recovered/Resolved]
  - Hyperlipidaemia [Recovered/Resolved]
  - Cataract [Recovered/Resolved]
  - Oral herpes [Recovered/Resolved]
  - Cellulitis [Recovered/Resolved]
  - Impaired work ability [Recovered/Resolved]
  - Inhibitory drug interaction [Recovered/Resolved]
  - Contusion [Recovered/Resolved]
  - Hypertension [Recovered/Resolved]
  - Insomnia [Recovered/Resolved]
  - Poor quality sleep [Recovered/Resolved]
  - Skin disorder [Recovered/Resolved]
  - Body tinea [Recovered/Resolved]
  - Bone density decreased [Recovered/Resolved]
  - Weight increased [Recovered/Resolved]
  - Purpura [Recovered/Resolved]
